FAERS Safety Report 16754727 (Version 2)
Quarter: 2019Q3

REPORT INFORMATION
  Report Type: Spontaneous
  Country: US (occurrence: US)
  Receive Date: 20190829
  Receipt Date: 20190919
  Transmission Date: 20191005
  Serious: No
  Sender: FDA-Public Use
  Company Number: US-PFIZER INC-2019372076

PATIENT
  Age: 61 Year
  Sex: Female
  Weight: 99.77 kg

DRUGS (1)
  1. LYRICA [Suspect]
     Active Substance: PREGABALIN
     Dosage: UNK

REACTIONS (3)
  - Micturition disorder [Recovered/Resolved]
  - Renal disorder [Recovered/Resolved]
  - Swelling [Recovered/Resolved]
